FAERS Safety Report 24135801 (Version 2)
Quarter: 2024Q3

REPORT INFORMATION
  Report Type: Spontaneous
  Country: AU (occurrence: AU)
  Receive Date: 20240725
  Receipt Date: 20240815
  Transmission Date: 20241017
  Serious: Yes (Other)
  Sender: BAUSCH AND LOMB
  Company Number: AU-BAUSCH-BL-2024-010961

PATIENT
  Age: 83 Year
  Sex: Female

DRUGS (1)
  1. FLUOROURACIL [Suspect]
     Active Substance: FLUOROURACIL
     Indication: Bowen^s disease
     Route: 065

REACTIONS (8)
  - Cognitive disorder [Unknown]
  - Fall [Unknown]
  - Dysarthria [Unknown]
  - Nausea [Recovered/Resolved]
  - Hyponatraemia [Unknown]
  - Hepatic function abnormal [Unknown]
  - Adverse drug reaction [Recovering/Resolving]
  - Unevaluable event [Unknown]
